FAERS Safety Report 9415618 (Version 1)
Quarter: 2013Q3

REPORT INFORMATION
  Report Type: Spontaneous
  Country: GB (occurrence: GB)
  Receive Date: 20130723
  Receipt Date: 20130723
  Transmission Date: 20140515
  Serious: Yes (Other)
  Sender: FDA-Public Use
  Company Number: PHHY2013GB074953

PATIENT
  Age: 54 Year
  Sex: Female
  Weight: 63 kg

DRUGS (5)
  1. TRAMADOL [Suspect]
  2. PARACETAMOL [Suspect]
     Indication: PAIN
     Dosage: 500 MG, QID
     Route: 048
     Dates: start: 20130702, end: 20130703
  3. CODEINE PHOSPHATE [Suspect]
     Indication: PAIN
     Dosage: 15 MG, UNK
  4. FLUCLOXACILLIN [Concomitant]
     Dosage: 500 MG, UNK
  5. CLINDAMYCIN [Concomitant]
     Dosage: 300 MG, QID
     Dates: start: 20130619

REACTIONS (9)
  - Gastrooesophageal reflux disease [Unknown]
  - Photophobia [Not Recovered/Not Resolved]
  - Chest pain [Unknown]
  - Migraine [Unknown]
  - Headache [Not Recovered/Not Resolved]
  - Dizziness [Not Recovered/Not Resolved]
  - Nausea [Not Recovered/Not Resolved]
  - Pain [Not Recovered/Not Resolved]
  - Vomiting [Unknown]
